FAERS Safety Report 8431239-6 (Version None)
Quarter: 2012Q2

REPORT INFORMATION
  Report Type: 
  Country: None (occurrence: None)
  Receive Date: 20120613
  Receipt Date: 20120605
  Transmission Date: 20120825
  Serious: Yes (Other)
  Sender: FDA-Public Use
  Company Number: JP-AMGEN-JPNSP2012035704

PATIENT
  Age: 96 Year
  Sex: Female

DRUGS (4)
  1. ROMIPLATE [Suspect]
     Indication: IDIOPATHIC THROMBOCYTOPENIC PURPURA
     Route: 058
     Dates: start: 20120321
  2. ROMIPLATE [Suspect]
     Route: 058
     Dates: start: 20120425
  3. ROMIPLATE [Suspect]
     Route: 058
     Dates: start: 20120516
  4. ROMIPLATE [Suspect]
     Route: 058
     Dates: start: 20120509

REACTIONS (1)
  - THROMBOSIS [None]
